FAERS Safety Report 8399744-9 (Version None)
Quarter: 2012Q2

REPORT INFORMATION
  Report Type: 
  Country: None (occurrence: None)
  Receive Date: 20120531
  Receipt Date: 20120525
  Transmission Date: 20120825
  Serious: Yes (Hospitalization)
  Sender: FDA-Public Use
  Company Number: DE-PFIZER INC-2012126523

PATIENT
  Age: 56 Year
  Sex: Male
  Weight: 69 kg

DRUGS (14)
  1. SYNTESTAN [Concomitant]
     Dosage: 7.5 MG, 1X/DAY
     Route: 048
     Dates: start: 20110622, end: 20110705
  2. SYNTESTAN [Concomitant]
     Dosage: 5 MG, 1X/DAY
     Route: 048
     Dates: start: 20110706, end: 20120209
  3. SITAGLIPTIN [Concomitant]
     Indication: DIABETES MELLITUS
     Dosage: 100 MG, 1X/DAY
     Route: 048
     Dates: start: 20100501
  4. CITALOPRAM [Concomitant]
     Indication: DEPRESSION
     Dosage: 20 MG, 1X/DAY
     Route: 048
     Dates: start: 20110401
  5. ETANERCEPT [Suspect]
     Indication: RHEUMATOID ARTHRITIS
     Dosage: 50 MG, ONCE WEEKLY
     Route: 058
     Dates: start: 20110524
  6. CELEBREX [Suspect]
     Indication: RHEUMATOID ARTHRITIS
     Dosage: 200 MG DAILY
     Route: 048
     Dates: start: 20110824, end: 20120301
  7. AZATHIOPRINE SODIUM [Concomitant]
     Indication: RHEUMATOID ARTHRITIS
     Dosage: 50 MG, 3X/DAY
     Route: 048
     Dates: start: 20091201
  8. OXYCODONE HYDROCHLORIDE [Concomitant]
     Indication: FRACTURE PAIN
     Dosage: 20 MG, 3X/DAY
     Route: 048
     Dates: start: 20110501
  9. SYNTESTAN [Concomitant]
     Dosage: 10 MG, 1X/DAY
     Route: 048
     Dates: start: 20110608, end: 20110621
  10. PANTOPRAZOLE [Concomitant]
     Indication: GASTRIC DISORDER
     Dosage: 40 MG, 1X/DAY
     Route: 048
     Dates: start: 20110401
  11. SYNTESTAN [Concomitant]
     Indication: RHEUMATOID ARTHRITIS
     Dosage: 12.5 MG, 1X/DAY
     Route: 048
     Dates: start: 20100301
  12. DENOSUMAB [Concomitant]
     Indication: OSTEOPOROSIS
     Dosage: 60 MG, UNK
     Dates: start: 20110428
  13. ISONIAZID [Concomitant]
     Indication: ANTIBIOTIC PROPHYLAXIS
     Dosage: 300 MG, 1X/DAY
     Route: 048
     Dates: start: 20110501, end: 20120523
  14. CALCIUM CARBONATE/COLECALCIFEROL [Concomitant]
     Indication: OSTEOPOROSIS
     Dosage: UNK
     Dates: start: 20080901

REACTIONS (1)
  - HELICOBACTER GASTRITIS [None]
